FAERS Safety Report 23104039 (Version 1)
Quarter: 2023Q4

REPORT INFORMATION
  Report Type: Spontaneous
  Country: US (occurrence: US)
  Receive Date: 20231025
  Receipt Date: 20231025
  Transmission Date: 20240109
  Serious: Yes (Other)
  Sender: FDA-Public Use
  Company Number: US-SA-SAC20231024000754

PATIENT
  Age: 81 Year
  Sex: Male

DRUGS (1)
  1. DUPIXENT [Suspect]
     Active Substance: DUPILUMAB
     Indication: Neurodermatitis
     Dosage: 300 MG, QOW
     Route: 058
     Dates: start: 20230823

REACTIONS (4)
  - Hip arthroplasty [Unknown]
  - Bursitis [Recovering/Resolving]
  - Pain [Unknown]
  - Myalgia [Unknown]

NARRATIVE: CASE EVENT DATE: 20230101
